FAERS Safety Report 7205791-2 (Version None)
Quarter: 2010Q4

REPORT INFORMATION
  Report Type: 
  Country: None (occurrence: None)
  Receive Date: 20101231
  Receipt Date: 20101222
  Transmission Date: 20110411
  Serious: Yes (Hospitalization)
  Sender: FDA-Public Use
  Company Number: SE-PFIZER INC-SE-WYE-G06831210

PATIENT
  Age: 65 Year
  Sex: Female

DRUGS (3)
  1. ETANERCEPT [Suspect]
     Indication: RHEUMATOID ARTHRITIS
     Dosage: UNK
     Dates: start: 20031128
  2. PREDNISOLONE [Suspect]
     Indication: RHEUMATOID ARTHRITIS
     Dosage: 5 MG, DAILY
     Route: 048
     Dates: start: 20091001
  3. METHOTREXATE SODIUM [Suspect]
     Dosage: 7.5 MG, WEEKLY
     Route: 048
     Dates: start: 20091001

REACTIONS (1)
  - ARTHRITIS BACTERIAL [None]
